FAERS Safety Report 8496231-4 (Version None)
Quarter: 2012Q3

REPORT INFORMATION
  Report Type: 
  Country: None (occurrence: None)
  Receive Date: 20120709
  Receipt Date: 20120625
  Transmission Date: 20120928
  Serious: Yes (Hospitalization)
  Sender: FDA-Public Use
  Company Number: GB-MYLANLABS-2012S1013079

PATIENT
  Age: 62 Year
  Sex: Male

DRUGS (1)
  1. ALLOPURINOL [Suspect]
     Indication: GOUT
     Dosage: THERAPEUTIC DOSE PRESCRIBED; INGESTED
     Route: 065

REACTIONS (4)
  - LIVER DISORDER [None]
  - TOXIC EPIDERMAL NECROLYSIS [None]
  - RENAL IMPAIRMENT [None]
  - COMPARTMENT SYNDROME [None]
